FAERS Safety Report 9559828 (Version 2)
Quarter: 2013Q4

REPORT INFORMATION
  Report Type: Spontaneous
  Country: US (occurrence: US)
  Receive Date: 20130927
  Receipt Date: 20131014
  Transmission Date: 20140711
  Serious: Yes (Other)
  Sender: FDA-Public Use
  Company Number: US-JNJFOC-20130913860

PATIENT
  Age: 27 Year
  Sex: Male
  Weight: 123.83 kg

DRUGS (5)
  1. INVOKANA [Suspect]
     Indication: TYPE 2 DIABETES MELLITUS
     Route: 048
     Dates: start: 20130730
  2. LIPITOR [Concomitant]
     Indication: LIPIDS INCREASED
  3. VICTOZA [Concomitant]
     Indication: TYPE 2 DIABETES MELLITUS
     Dates: start: 201306
  4. LANTUS [Concomitant]
     Indication: TYPE 2 DIABETES MELLITUS
     Dates: start: 201306
  5. METFORMIN [Concomitant]
     Indication: TYPE 2 DIABETES MELLITUS
     Dates: start: 201111

REACTIONS (1)
  - Prostatitis [Recovered/Resolved]
